FAERS Safety Report 4349905-0 (Version None)
Quarter: 2004Q2

REPORT INFORMATION
  Report Type: 
  Country: None (occurrence: None)
  Receive Date: 20040428
  Receipt Date: 20040428
  Transmission Date: 20050107
  Serious: Yes (Death)
  Sender: FDA-Public Use
  Company Number: None

PATIENT
  Age: 65 Year
  Sex: Male
  Weight: 128.8216 kg

DRUGS (2)
  1. RETEPLASE 10 UNITS CENTOCOR [Suspect]
     Indication: MYOCARDIAL INFARCTION
     Dosage: 10 UNITS X2 INTRAVENOUS
     Route: 042
     Dates: start: 20040325, end: 20040325
  2. HEPARIN [Suspect]
     Indication: MYOCARDIAL INFARCTION
     Dosage: 5,000 UNITS X1 INTRAVENOUS
     Route: 042
     Dates: start: 20040325, end: 20040325

REACTIONS (2)
  - BACK PAIN [None]
  - HAEMORRHAGE INTRACRANIAL [None]
